FAERS Safety Report 7706326-8 (Version None)
Quarter: 2011Q3

REPORT INFORMATION
  Report Type: 
  Country: None (occurrence: None)
  Receive Date: 20110818
  Receipt Date: 20110805
  Transmission Date: 20111222
  Serious: Yes (Hospitalization)
  Sender: FDA-Public Use
  Company Number: TCI2011A04379

PATIENT
  Age: 61 Year
  Sex: Male

DRUGS (5)
  1. ACTOS [Suspect]
     Indication: TYPE 2 DIABETES MELLITUS
     Dosage: 15 MG (15 MG, 1 D) PER ORAL
     Route: 048
     Dates: start: 20100216
  2. AMARYL [Concomitant]
  3. ATELEC (CILNIDIPINE) [Concomitant]
  4. METFORMIN HYDROCHLORIDE [Concomitant]
  5. MICARDIS [Concomitant]

REACTIONS (2)
  - TREATMENT NONCOMPLIANCE [None]
  - APPENDICITIS [None]
